FAERS Safety Report 24733424 (Version 1)
Quarter: 2024Q4

REPORT INFORMATION
  Report Type: Report from Study
  Country: US (occurrence: US)
  Receive Date: 20241213
  Receipt Date: 20241213
  Transmission Date: 20250115
  Serious: Yes (Hospitalization, Other)
  Sender: ABBVIE
  Company Number: US-ABBVIE-6039547

PATIENT
  Age: 78 Year
  Sex: Female

DRUGS (2)
  1. RINVOQ [Suspect]
     Active Substance: UPADACITINIB
     Indication: Psoriatic arthropathy
     Dosage: FORM STRENGTH 15MG
     Route: 048
     Dates: start: 202302, end: 202410
  2. RINVOQ [Suspect]
     Active Substance: UPADACITINIB
     Indication: Psoriatic arthropathy
     Dosage: FORM STRENGTH 15MG?FIRST AND LAST ADMIN DATE 2024
     Route: 048

REACTIONS (7)
  - Femur fracture [Unknown]
  - Haemoglobin decreased [Unknown]
  - Tooth extraction [Unknown]
  - Back pain [Unknown]
  - Arthralgia [Unknown]
  - Herpes zoster [Unknown]
  - Herpes zoster [Recovered/Resolved]

NARRATIVE: CASE EVENT DATE: 20240101
